FAERS Safety Report 8042369-5 (Version None)
Quarter: 2011Q4

REPORT INFORMATION
  Report Type: 
  Country: None (occurrence: None)
  Receive Date: 20111209
  Receipt Date: 20110907
  Transmission Date: 20120403
  Serious: Yes (Other)
  Sender: FDA-Public Use
  Company Number: TH-2011-00356

PATIENT
  Sex: Male

DRUGS (4)
  1. EGRIFTA [Suspect]
     Indication: LIPODYSTROPHY ACQUIRED
     Dosage: 1 IN 1 D, SUBCUTANEOUS
     Route: 058
  2. TRUVADA [Concomitant]
  3. UNSPECIFIED PROPHYLACTIC MEDICATION [Concomitant]
  4. NORVIR [Concomitant]

REACTIONS (1)
  - HIP SURGERY [None]
